FAERS Safety Report 21590228 (Version 1)
Quarter: 2022Q4

REPORT INFORMATION
  Report Type: Spontaneous
  Country: GB (occurrence: GB)
  Receive Date: 20221114
  Receipt Date: 20221114
  Transmission Date: 20230113
  Serious: Yes (Hospitalization, Other)
  Sender: FDA-Public Use
  Company Number: None

PATIENT
  Age: 74 Year
  Sex: Male

DRUGS (13)
  1. ATORVASTATIN [Suspect]
     Active Substance: ATORVASTATIN
     Indication: Product used for unknown indication
     Dosage: 80 MILLIGRAM, QD
     Route: 065
     Dates: start: 20150803, end: 20221018
  2. GABAPENTIN [Suspect]
     Active Substance: GABAPENTIN
     Indication: Nerve compression
     Dosage: 100 MILLIGRAM, TID (BD AFTER A WEEK INCREASE TO TD)
     Route: 065
     Dates: start: 20220727
  3. GABAPENTIN [Suspect]
     Active Substance: GABAPENTIN
     Dosage: 100 MILLIGRAM, BID (BD AFTER A WEEK INCREASE TO TD)
     Route: 065
     Dates: start: 20220720
  4. AMITRIPTYLINE [Concomitant]
     Active Substance: AMITRIPTYLINE
     Dosage: 10 MILLIGRAM, QD (AT NIGHT)
     Route: 065
  5. ASPIRIN [Concomitant]
     Active Substance: ASPIRIN
     Dosage: 75 MILLIGRAM, QD
     Route: 065
  6. BECONASE AQ [Concomitant]
     Active Substance: BECLOMETHASONE DIPROPIONATE MONOHYDRATE
     Dosage: UNK UNK, PRN (AS DIRECTED)
     Route: 045
  7. BECLOMETHASONE\FORMOTEROL [Concomitant]
     Active Substance: BECLOMETHASONE\FORMOTEROL
     Dosage: 1 DOSAGE FORM, BID
     Route: 055
  8. OMEPRAZOLE [Concomitant]
     Active Substance: OMEPRAZOLE
     Dosage: 20 MILLIGRAM, BID
     Route: 065
  9. ACETAMINOPHEN [Concomitant]
     Active Substance: ACETAMINOPHEN
     Dosage: 1 GRAM, QD (500MG - 1G QD)
     Route: 065
  10. RANOLAZINE [Concomitant]
     Active Substance: RANOLAZINE
     Dosage: 750 MILLIGRAM, BID
     Route: 065
  11. POTASSIUM BICARBONATE [Concomitant]
     Active Substance: POTASSIUM BICARBONATE
     Dosage: UNK, 5 - 10ML FOUR TIMES A DAY100MG/5ML
     Route: 065
  12. SODIUM ALGINATE [Concomitant]
     Active Substance: SODIUM ALGINATE
     Dosage: UNK (5 - 10ML FOUR TIMES A DAY500MG/5ML)
     Route: 065
  13. ALBUTEROL [Concomitant]
     Active Substance: ALBUTEROL
     Dosage: 2 DOSAGE FORM, PRN (2 PUFFS WHEN REQUIRED - 100MICROGRAMS/DOSE)
     Route: 055

REACTIONS (3)
  - Myositis [Unknown]
  - Rhabdomyolysis [Unknown]
  - Muscular weakness [Unknown]

NARRATIVE: CASE EVENT DATE: 20221014
